FAERS Safety Report 18497806 (Version 1)
Quarter: 2020Q4

REPORT INFORMATION
  Report Type: Spontaneous
  Country: HU (occurrence: HU)
  Receive Date: 20201112
  Receipt Date: 20201112
  Transmission Date: 20210114
  Serious: Yes (Hospitalization)
  Sender: FDA-Public Use
  Company Number: HU-MYLANLABS-2020M1093820

PATIENT
  Age: 64 Year
  Sex: Male

DRUGS (8)
  1. BACLOFEN. [Suspect]
     Active Substance: BACLOFEN
     Indication: INTERVERTEBRAL DISCITIS
     Dosage: UNK
  2. FENTANYL. [Suspect]
     Active Substance: FENTANYL
     Indication: INTERVERTEBRAL DISCITIS
     Dosage: UNK
     Route: 062
  3. TOLPERISONE [Suspect]
     Active Substance: TOLPERISONE
     Indication: PAIN
     Dosage: UNK
  4. BACLOFEN. [Suspect]
     Active Substance: BACLOFEN
     Indication: PAIN
     Dosage: UNK
     Route: 065
  5. FENTANYL. [Suspect]
     Active Substance: FENTANYL
     Indication: PAIN
     Dosage: UNK
  6. TOLPERISONE [Suspect]
     Active Substance: TOLPERISONE
     Indication: INTERVERTEBRAL DISCITIS
     Dosage: UNK
     Route: 065
  7. PREGABALIN. [Suspect]
     Active Substance: PREGABALIN
     Indication: PAIN
     Dosage: UNK
  8. PREGABALIN. [Suspect]
     Active Substance: PREGABALIN
     Indication: INTERVERTEBRAL DISCITIS
     Dosage: UNK
     Route: 065

REACTIONS (1)
  - Drug ineffective [Unknown]

NARRATIVE: CASE EVENT DATE: 201910
